FAERS Safety Report 14303289 (Version 3)
Quarter: 2025Q4

REPORT INFORMATION
  Report Type: Spontaneous
  Country: EU (occurrence: EU)
  Receive Date: 20171219
  Receipt Date: 20251001
  Transmission Date: 20260118
  Serious: Yes (Hospitalization, Other)
  Sender: OTSUKA
  Company Number: None

PATIENT
  Age: 35 Year
  Sex: Male
  Weight: 67 kg

DRUGS (4)
  1. ABILIFY [Suspect]
     Active Substance: ARIPIPRAZOLE
     Indication: Schizophrenia
     Dosage: STYRKE: 10 MG
     Route: 065
  2. ABILIFY [Suspect]
     Active Substance: ARIPIPRAZOLE
     Dosage: 20 MG, QD
     Dates: end: 20250811
  3. ABILIFY [Suspect]
     Active Substance: ARIPIPRAZOLE
     Dosage: UNK (STARTED SINCE JUN-1999)
  4. ABILIFY [Suspect]
     Active Substance: ARIPIPRAZOLE
     Indication: Schizophrenia
     Dosage: 30 MG, QD
     Dates: end: 202405

REACTIONS (26)
  - Immunodeficiency [Not Recovered/Not Resolved]
  - Dependence [Not Recovered/Not Resolved]
  - Erectile dysfunction [Unknown]
  - Suicidal ideation [Not Recovered/Not Resolved]
  - Syncope [Unknown]
  - Insomnia [Not Recovered/Not Resolved]
  - Libido increased [Not Recovered/Not Resolved]
  - Heart rate abnormal [Unknown]
  - Cardiac disorder [Not Recovered/Not Resolved]
  - Acrochordon [Unknown]
  - Venous thrombosis [Not Recovered/Not Resolved]
  - Libido decreased [Unknown]
  - Dyspnoea [Not Recovered/Not Resolved]
  - Nervousness [Unknown]
  - Depression [Unknown]
  - Disturbance in attention [Unknown]
  - Rash [Unknown]
  - Restlessness [Recovering/Resolving]
  - Dyskinesia [Unknown]
  - Fatigue [Not Recovered/Not Resolved]
  - Weight decreased [Not Recovered/Not Resolved]
  - Anxiety [Unknown]
  - Chest pain [Unknown]
  - Tremor [Unknown]
  - Impulsive behaviour [Not Recovered/Not Resolved]
  - Decreased appetite [Recovering/Resolving]

NARRATIVE: CASE EVENT DATE: 19990608
